FAERS Safety Report 20059341 (Version 1)
Quarter: 2021Q4

REPORT INFORMATION
  Report Type: Report from Study
  Country: FR (occurrence: FR)
  Receive Date: 20211111
  Receipt Date: 20211111
  Transmission Date: 20220303
  Serious: Yes (Hospitalization)
  Sender: FDA-Public Use
  Company Number: FR-SERVIER-S21012206

PATIENT

DRUGS (7)
  1. PEGASPARGASE [Suspect]
     Active Substance: PEGASPARGASE
     Indication: Acute lymphocytic leukaemia
     Dosage: 5000 IU ON D4
     Route: 042
     Dates: start: 20210816, end: 20210816
  2. TN UNSPECIFIED [Concomitant]
     Indication: Acute lymphocytic leukaemia
     Dosage: 30 MG ON D4
     Route: 037
     Dates: start: 20210816, end: 20210816
  3. TN UNSPECIFIED [Concomitant]
     Indication: Acute lymphocytic leukaemia
     Dosage: 15 MG, ON D4
     Route: 037
     Dates: start: 20210816, end: 20210816
  4. TN UNSPECIFIED [Concomitant]
     Indication: Acute lymphocytic leukaemia
     Dosage: 15 MG, ON D4
     Route: 037
     Dates: start: 20210816, end: 20210816
  5. TN UNSPECIFIED [Concomitant]
     Indication: Acute lymphocytic leukaemia
     Dosage: 2 MG, ON D1
     Route: 042
     Dates: start: 20210813, end: 20210813
  6. TN UNSPECIFIED [Concomitant]
     Indication: Acute lymphocytic leukaemia
     Dosage: 50 MG, ON D1
     Route: 042
     Dates: start: 20210813, end: 20210813
  7. TN UNSPECIFIED [Concomitant]
     Indication: Acute lymphocytic leukaemia
     Dosage: 10 MG, ON D1 TO D7
     Route: 048
     Dates: start: 20210813, end: 20210910

REACTIONS (1)
  - Diabetic ketosis [Recovered/Resolved]

NARRATIVE: CASE EVENT DATE: 20210820
